FAERS Safety Report 10337944 (Version 1)
Quarter: 2014Q3

REPORT INFORMATION
  Report Type: Spontaneous
  Country: US (occurrence: US)
  Receive Date: 20140724
  Receipt Date: 20140724
  Transmission Date: 20150326
  Serious: No
  Sender: FDA-Public Use
  Company Number: US-UNITED THERAPEUTICS-UTC-047278

PATIENT
  Sex: Female
  Weight: 70.76 kg

DRUGS (2)
  1. REMODULIN [Suspect]
     Active Substance: TREPROSTINIL
     Dosage: .025 UG/KG/MIN
     Route: 058
     Dates: start: 20131112
  2. LETAIRIS [Concomitant]
     Active Substance: AMBRISENTAN

REACTIONS (4)
  - Dyspnoea [Unknown]
  - Infusion site erythema [Unknown]
  - Injection site streaking [Unknown]
  - Infusion site pain [Unknown]
